FAERS Safety Report 5068082-4 (Version None)
Quarter: 2006Q3

REPORT INFORMATION
  Report Type: 
  Country: None (occurrence: None)
  Receive Date: 20060802
  Receipt Date: 20060310
  Transmission Date: 20061208
  Serious: Yes (Hospitalization)
  Sender: FDA-Public Use
  Company Number: US-SANOFI-SYNTHELABO-A03200601315

PATIENT
  Sex: Female

DRUGS (10)
  1. AMBIEN [Suspect]
     Indication: INSOMNIA
     Route: 048
     Dates: start: 19980101, end: 20050601
  2. IMITREX [Concomitant]
     Route: 048
  3. PRAVACHOL [Concomitant]
     Route: 048
  4. PREVACID [Concomitant]
     Route: 048
  5. AXID [Concomitant]
     Route: 048
  6. ZOCOR [Concomitant]
     Route: 048
  7. BENTYL [Concomitant]
     Route: 048
  8. CRESTOR [Concomitant]
     Route: 048
  9. SOMA [Concomitant]
     Route: 048
  10. WELLBUTRIN [Concomitant]
     Route: 048

REACTIONS (9)
  - AMNESIA [None]
  - BINGE EATING [None]
  - GASTRIC DISORDER [None]
  - GASTRIC ULCER [None]
  - GASTROOESOPHAGEAL REFLUX DISEASE [None]
  - NAUSEA [None]
  - SLEEP WALKING [None]
  - VOMITING [None]
  - WEIGHT INCREASED [None]
